FAERS Safety Report 5070922-X (Version None)
Quarter: 2006Q3

REPORT INFORMATION
  Report Type: 
  Country: None (occurrence: None)
  Receive Date: 20060804
  Receipt Date: 20060725
  Transmission Date: 20061208
  Serious: Yes (Disabling, Other)
  Sender: FDA-Public Use
  Company Number: PHEH2006US09543

PATIENT
  Age: 61 Year
  Sex: Female
  Weight: 63 kg

DRUGS (6)
  1. EXJADE [Suspect]
     Dosage: 1250 MG, QD
     Dates: start: 20060512, end: 20060726
  2. EXJADE [Suspect]
  3. ANHONSIP [Concomitant]
     Indication: ANAEMIA
     Dosage: 300 MG, QW3
     Dates: start: 20041201
  4. ESTROGEN NOS [Concomitant]
     Indication: HORMONE REPLACEMENT THERAPY
     Dosage: 1 UNK, QD
  5. VALCYTE [Concomitant]
     Dosage: 900 MG, QD
     Dates: start: 20010918
  6. NEXIUM [Concomitant]
     Indication: GASTROOESOPHAGEAL REFLUX DISEASE
     Dosage: 40 MG, QD
     Dates: start: 20040918

REACTIONS (4)
  - DYSGEUSIA [None]
  - FATIGUE [None]
  - HEADACHE [None]
  - PLATELET COUNT DECREASED [None]
